FAERS Safety Report 15191469 (Version 1)
Quarter: 2018Q3

REPORT INFORMATION
  Report Type: Report from Study
  Country: US (occurrence: US)
  Receive Date: 20180724
  Receipt Date: 20180724
  Transmission Date: 20181010
  Serious: No
  Sender: FDA-Public Use
  Company Number: US-AMGEN-USASL2018026229

PATIENT
  Age: 66 Year
  Sex: Female

DRUGS (1)
  1. KYPROLIS [Suspect]
     Active Substance: CARFILZOMIB
     Indication: PLASMA CELL MYELOMA
     Dosage: UNK (THREE WEEKS ON ONE WEEK OFF)
     Route: 065
     Dates: start: 201801, end: 2018

REACTIONS (9)
  - Eye swelling [Unknown]
  - Lymphadenopathy [Unknown]
  - Dyspnoea [Unknown]
  - Swelling face [Unknown]
  - Nasal dryness [Unknown]
  - Fatigue [Unknown]
  - Chest discomfort [Unknown]
  - Paranasal sinus hyposecretion [Unknown]
  - Facial pain [Unknown]

NARRATIVE: CASE EVENT DATE: 2018
